FAERS Safety Report 4411565-8 (Version None)
Quarter: 2004Q3

REPORT INFORMATION
  Report Type: 
  Country: None (occurrence: None)
  Receive Date: 20040728
  Receipt Date: 20040728
  Transmission Date: 20050211
  Serious: Yes (Hospitalization)
  Sender: FDA-Public Use
  Company Number: None

PATIENT
  Age: 48 Year
  Sex: Female
  Weight: 66 kg

DRUGS (8)
  1. TAXOL [Suspect]
     Indication: LARYNGEAL CANCER
     Dosage: 80 MG IV Q WEEK
     Route: 042
     Dates: start: 20040601
  2. TAXOL [Suspect]
     Indication: LARYNGEAL CANCER
     Dosage: 80 MG IV Q WEEK
     Route: 042
     Dates: start: 20040607
  3. TAXOL [Suspect]
     Indication: LARYNGEAL CANCER
     Dosage: 80 MG IV Q WEEK
     Route: 042
     Dates: start: 20040614
  4. TAXOL [Suspect]
     Indication: LARYNGEAL CANCER
     Dosage: 80 MG IV Q WEEK
     Route: 042
     Dates: start: 20040628
  5. CARBOPLATIN [Suspect]
     Indication: LARYNGEAL CANCER
     Dosage: 175 MG IV Q WEEK
     Route: 042
     Dates: start: 20040601
  6. CARBOPLATIN [Suspect]
     Indication: LARYNGEAL CANCER
     Dosage: 175 MG IV Q WEEK
     Route: 042
     Dates: start: 20040607
  7. CARBOPLATIN [Suspect]
     Indication: LARYNGEAL CANCER
     Dosage: 175 MG IV Q WEEK
     Route: 042
     Dates: start: 20040614
  8. CARBOPLATIN [Suspect]
     Indication: LARYNGEAL CANCER
     Dosage: 175 MG IV Q WEEK
     Route: 042
     Dates: start: 20040628

REACTIONS (5)
  - CONSTIPATION [None]
  - DEEP VEIN THROMBOSIS [None]
  - DEHYDRATION [None]
  - NAUSEA [None]
  - VOMITING [None]
